FAERS Safety Report 6051889-4 (Version None)
Quarter: 2009Q1

REPORT INFORMATION
  Report Type: 
  Country: None (occurrence: None)
  Receive Date: 20090121
  Receipt Date: 20090121
  Transmission Date: 20090719
  Serious: No
  Sender: FDA-Public Use
  Company Number: None

PATIENT
  Sex: Female
  Weight: 63.5036 kg

DRUGS (1)
  1. CYANOCOBALAMIN INJ [Suspect]
     Dosage: 1000 MCG BIWEEKLY INJECTION

REACTIONS (5)
  - FEELING ABNORMAL [None]
  - FEELING JITTERY [None]
  - HYPERHIDROSIS [None]
  - PALPITATIONS [None]
  - SWEAT DISCOLOURATION [None]
